FAERS Safety Report 10297839 (Version 7)
Quarter: 2014Q4

REPORT INFORMATION
  Report Type: Report from Study
  Country: US (occurrence: US)
  Receive Date: 20140711
  Receipt Date: 20141212
  Transmission Date: 20150528
  Serious: Yes (Other)
  Sender: FDA-Public Use
  Company Number: US-SA-2014SA083893

PATIENT
  Age: 38 Year
  Sex: Female

DRUGS (2)
  1. AUBAGIO [Suspect]
     Active Substance: TERIFLUNOMIDE
     Indication: MULTIPLE SCLEROSIS
     Route: 048
     Dates: start: 20140617, end: 20140913
  2. AUBAGIO [Suspect]
     Active Substance: TERIFLUNOMIDE
     Indication: MULTIPLE SCLEROSIS
     Route: 048
     Dates: start: 20140914

REACTIONS (17)
  - Hypoaesthesia [Not Recovered/Not Resolved]
  - Memory impairment [Not Recovered/Not Resolved]
  - Fatigue [Unknown]
  - Pruritus [Not Recovered/Not Resolved]
  - Cold sweat [Unknown]
  - Paralysis [Not Recovered/Not Resolved]
  - Pain in extremity [Unknown]
  - Diarrhoea [Recovered/Resolved]
  - Hypoaesthesia [Recovering/Resolving]
  - Abdominal pain [Recovered/Resolved]
  - Influenza [Unknown]
  - Abdominal discomfort [Unknown]
  - Drug dose omission [Unknown]
  - Limb discomfort [Unknown]
  - Flushing [Unknown]
  - Paraesthesia [Not Recovered/Not Resolved]
  - Menstruation irregular [Unknown]

NARRATIVE: CASE EVENT DATE: 20140621
